FAERS Safety Report 8623207 (Version 3)
Quarter: 2013Q4

REPORT INFORMATION
  Report Type: Spontaneous
  Country: JP (occurrence: JP)
  Receive Date: 20120620
  Receipt Date: 20131204
  Transmission Date: 20140711
  Serious: Yes (Life-Threatening, Other)
  Sender: FDA-Public Use
  Company Number: JP-ELI_LILLY_AND_COMPANY-JP201206004898

PATIENT
  Age: 34 Year
  Sex: Male

DRUGS (6)
  1. ZYPREXA [Suspect]
     Indication: BIPOLAR DISORDER
     Dosage: 10 MG, QD
     Route: 048
  2. LITHIUM CARBONATE [Concomitant]
     Indication: BIPOLAR DISORDER
     Dosage: UNK
     Route: 048
  3. SODIUM VALPROATE [Concomitant]
     Indication: BIPOLAR DISORDER
     Dosage: UNK
     Route: 048
  4. QUETIAPINE [Concomitant]
     Indication: BIPOLAR DISORDER
     Dosage: UNK
     Route: 048
  5. BROTIZOLAM [Concomitant]
     Dosage: UNK
     Route: 048
  6. FLUNITRAZEPAM [Concomitant]
     Dosage: UNK
     Route: 048

REACTIONS (15)
  - Blood pressure decreased [Unknown]
  - Convulsion [Unknown]
  - Blood creatine phosphokinase increased [Unknown]
  - Blood urea increased [Unknown]
  - Blood creatinine increased [Unknown]
  - C-reactive protein increased [Unknown]
  - Procalcitonin increased [Unknown]
  - Enterocolitis [Unknown]
  - Oliguria [Unknown]
  - Critical illness polyneuropathy [Recovering/Resolving]
  - Heart rate increased [Unknown]
  - Body temperature increased [Unknown]
  - Delirium [Unknown]
  - Agitation [Unknown]
  - White blood cell count increased [Unknown]
